FAERS Safety Report 10596464 (Version 1)
Quarter: 2014Q4

REPORT INFORMATION
  Report Type: Other
  Country: NL (occurrence: NL)
  Receive Date: 20141120
  Receipt Date: 20141120
  Transmission Date: 20150529
  Serious: Yes (Other)
  Sender: FDA-Public Use
  Company Number: NL-ASTELLAS-2014EU014334

PATIENT
  Age: 44 Year
  Sex: Female

DRUGS (1)
  1. BETMIGA [Suspect]
     Active Substance: MIRABEGRON
     Indication: PRODUCT USED FOR UNKNOWN INDICATION
     Route: 048
     Dates: start: 20141008, end: 20141104

REACTIONS (3)
  - Pruritus [Unknown]
  - Palpitations [Unknown]
  - Angioedema [Unknown]

NARRATIVE: CASE EVENT DATE: 201410
